FAERS Safety Report 21945298 (Version 1)
Quarter: 2023Q1

REPORT INFORMATION
  Report Type: Spontaneous
  Country: AR (occurrence: AR)
  Receive Date: 20230202
  Receipt Date: 20230202
  Transmission Date: 20230417
  Serious: Yes (Other)
  Sender: FDA-Public Use
  Company Number: AR-002147023-NVSC2023AR019520

PATIENT
  Age: 3 Year
  Sex: Male

DRUGS (4)
  1. JADENU [Suspect]
     Active Substance: DEFERASIROX
     Indication: Thalassaemia
     Dosage: 360 MG (2 OF 180MG) (THREE PER WEEK)
     Route: 048
     Dates: start: 20200501, end: 20230125
  2. JADENU [Suspect]
     Active Substance: DEFERASIROX
     Dosage: 270 MG (1 OF 180MG + 1 OF 90MG) (FOUR TIMES A WEEK)
     Route: 048
     Dates: start: 20200501, end: 20230125
  3. JADENU [Suspect]
     Active Substance: DEFERASIROX
     Dosage: 180 MG
     Route: 048
     Dates: end: 20230110
  4. JADENU [Suspect]
     Active Substance: DEFERASIROX
     Dosage: 270 MG
     Route: 048
     Dates: start: 20230110

REACTIONS (7)
  - Hypophosphataemic osteomalacia [Unknown]
  - Osteopenia [Unknown]
  - Renal tubular disorder [Unknown]
  - Proteinuria [Unknown]
  - Urine calcium [Unknown]
  - Urine sodium [Unknown]
  - Off label use [Unknown]

NARRATIVE: CASE EVENT DATE: 20220101
